FAERS Safety Report 15931249 (Version 1)
Quarter: 2019Q1

REPORT INFORMATION
  Report Type: Spontaneous
  Country: CN (occurrence: CN)
  Receive Date: 20190207
  Receipt Date: 20190207
  Transmission Date: 20190417
  Serious: Yes (Other)
  Sender: FDA-Public Use
  Company Number: CN-ROCHE-2252471

PATIENT
  Age: 61 Year
  Sex: Female

DRUGS (22)
  1. 5-FLUOROURACIL [Concomitant]
     Active Substance: FLUOROURACIL
     Route: 065
     Dates: start: 20150115
  2. CALCIUM FOLINATE [Concomitant]
     Active Substance: LEUCOVORIN CALCIUM
     Dosage: 46H,Q2W
     Route: 042
     Dates: start: 20140628, end: 20140813
  3. IRINOTECAN [Concomitant]
     Active Substance: IRINOTECAN
     Route: 041
     Dates: start: 20170305
  4. IRINOTECAN [Concomitant]
     Active Substance: IRINOTECAN
     Route: 041
     Dates: start: 20170511
  5. IRINOTECAN [Concomitant]
     Active Substance: IRINOTECAN
     Route: 041
     Dates: start: 20170328
  6. 5-FLUOROURACIL [Concomitant]
     Active Substance: FLUOROURACIL
     Route: 065
     Dates: start: 20140903, end: 20141024
  7. CALCIUM FOLINATE [Concomitant]
     Active Substance: LEUCOVORIN CALCIUM
     Route: 042
     Dates: start: 20140903, end: 20141024
  8. RALTITREXED [Concomitant]
     Active Substance: RALTITREXED
     Route: 041
     Dates: start: 20170419
  9. RALTITREXED [Concomitant]
     Active Substance: RALTITREXED
     Route: 041
     Dates: start: 20170511
  10. IRINOTECAN [Concomitant]
     Active Substance: IRINOTECAN
     Route: 041
     Dates: start: 20170419
  11. RALTITREXED [Concomitant]
     Active Substance: RALTITREXED
     Route: 041
     Dates: start: 20170328
  12. 5-FLUOROURACIL [Concomitant]
     Active Substance: FLUOROURACIL
     Route: 065
     Dates: start: 20140628, end: 20140813
  13. IRINOTECAN [Concomitant]
     Active Substance: IRINOTECAN
     Route: 041
     Dates: start: 20160723, end: 20160907
  14. RALTITREXED [Concomitant]
     Active Substance: RALTITREXED
     Route: 041
     Dates: start: 20170305
  15. BEVACIZUMAB. [Suspect]
     Active Substance: BEVACIZUMAB
     Route: 065
     Dates: start: 20150206
  16. BEVACIZUMAB. [Suspect]
     Active Substance: BEVACIZUMAB
     Indication: ADENOCARCINOMA OF COLON
     Route: 065
     Dates: start: 20140628, end: 20140813
  17. OXALIPLATIN. [Concomitant]
     Active Substance: OXALIPLATIN
     Route: 065
     Dates: start: 20140628, end: 20140813
  18. CALCIUM FOLINATE [Concomitant]
     Active Substance: LEUCOVORIN CALCIUM
     Route: 042
     Dates: start: 20150115
  19. BEVACIZUMAB. [Suspect]
     Active Substance: BEVACIZUMAB
     Indication: METASTASES TO LIVER
     Route: 065
     Dates: start: 20140903, end: 20141024
  20. BEVACIZUMAB. [Suspect]
     Active Substance: BEVACIZUMAB
     Route: 065
     Dates: start: 201503, end: 201508
  21. OXALIPLATIN. [Concomitant]
     Active Substance: OXALIPLATIN
     Route: 065
     Dates: start: 20140903, end: 20141024
  22. OXALIPLATIN. [Concomitant]
     Active Substance: OXALIPLATIN
     Route: 065
     Dates: start: 20150115

REACTIONS (9)
  - Anorectal disorder [Recovered/Resolved]
  - Frequent bowel movements [Recovering/Resolving]
  - Decreased appetite [Unknown]
  - Intestinal obstruction [Unknown]
  - Proctalgia [Unknown]
  - Anal prolapse [Unknown]
  - Asthenia [Unknown]
  - Diarrhoea [Recovering/Resolving]
  - Abdominal distension [Recovered/Resolved]

NARRATIVE: CASE EVENT DATE: 201605
